FAERS Safety Report 8676287 (Version 2)
Quarter: 2012Q4

REPORT INFORMATION
  Report Type: 
  Country: US (occurrence: US)
  Receive Date: 20120720
  Receipt Date: 20121120
  Transmission Date: 20130627
  Serious: Yes (Other)
  Sender: FDA-Public Use
  Company Number: US-ELI_LILLY_AND_COMPANY-US201110007773

PATIENT
  Sex: Female
  Weight: 70.3 kg

DRUGS (9)
  1. BYETTA [Suspect]
     Indication: INSULIN-REQUIRING TYPE 2 DIABETES MELLITUS
     Dosage: 5 ug, bid
     Route: 058
     Dates: start: 200807
  2. BYETTA [Suspect]
     Dosage: 10 ug, bid
     Route: 058
     Dates: end: 201204
  3. BYETTA [Suspect]
     Dosage: 5 ug, bid
     Route: 058
     Dates: start: 201208
  4. BYETTA [Suspect]
     Dosage: 10 ug, bid
     Route: 058
  5. LANTUS [Concomitant]
     Indication: INSULIN-REQUIRING TYPE 2 DIABETES MELLITUS
     Dosage: 18 u, each evening
  6. HUMALOG [Concomitant]
     Indication: INSULIN-REQUIRING TYPE 2 DIABETES MELLITUS
     Dosage: UNK UNK, prn
     Route: 058
  7. NOVOLOG [Concomitant]
     Dosage: UNK
  8. NOVOLOG MIX 70/30 [Concomitant]
  9. VICTOZA [Concomitant]
     Indication: INSULIN-REQUIRING TYPE 2 DIABETES MELLITUS
     Dosage: UNK

REACTIONS (18)
  - Blood glucose increased [Unknown]
  - Weight increased [Unknown]
  - Impaired insulin secretion [Unknown]
  - Insulin C-peptide decreased [Not Recovered/Not Resolved]
  - Hunger [Recovered/Resolved]
  - Nervousness [Not Recovered/Not Resolved]
  - Intentional drug misuse [Not Recovered/Not Resolved]
  - Blood glucose decreased [Unknown]
  - Weight decreased [Unknown]
  - Fatigue [Unknown]
  - Dyspepsia [Unknown]
  - Drug effect decreased [Unknown]
  - Nausea [Unknown]
  - Constipation [Unknown]
  - Abdominal discomfort [Recovering/Resolving]
  - Headache [Not Recovered/Not Resolved]
  - Decreased appetite [Not Recovered/Not Resolved]
  - Off label use [Not Recovered/Not Resolved]
